FAERS Safety Report 21022940 (Version 6)
Quarter: 2023Q4

REPORT INFORMATION
  Report Type: Spontaneous
  Country: GB (occurrence: GB)
  Receive Date: 20220629
  Receipt Date: 20231103
  Transmission Date: 20240109
  Serious: Yes (Other)
  Sender: FDA-Public Use
  Company Number: None

PATIENT
  Age: 40 Year
  Sex: Male

DRUGS (13)
  1. LOSARTAN [Suspect]
     Active Substance: LOSARTAN
     Indication: Product used for unknown indication
     Dosage: STRENGTH: 50 MG?ONE EVERY MORNING
     Route: 048
  2. INDAPAMIDE [Suspect]
     Active Substance: INDAPAMIDE
     Indication: Product used for unknown indication
     Dosage: STRENGTH: 1.5 MG?ONE EACH MORNING
     Route: 048
  3. LANSOPRAZOLE [Suspect]
     Active Substance: LANSOPRAZOLE
     Indication: Product used for unknown indication
     Dosage: STRENGTH: 30 MG?ONE TO BE TAKEN TWICE DAILY OR AS DIRECTED BY SPECIALIST
     Route: 048
  4. AMITRIPTYLINE [Suspect]
     Active Substance: AMITRIPTYLINE
     Indication: Product used for unknown indication
     Dosage: STRENGTH: 25 MG?ONE TO BE TAKEN EACH NIGHT
     Route: 048
  5. AMLODIPINE [Suspect]
     Active Substance: AMLODIPINE BESYLATE
     Indication: Product used for unknown indication
     Dosage: STRENGTH: 5 MG?ONE DAILY
     Route: 048
  6. ATORVASTATIN [Suspect]
     Active Substance: ATORVASTATIN
     Indication: Product used for unknown indication
     Dosage: STRENGTH: 40 MG?ONE EVERY DAY
     Route: 048
  7. CALCEOS [Suspect]
     Active Substance: CALCIUM CARBONATE\CHOLECALCIFEROL
     Indication: Product used for unknown indication
     Dosage: STRENGTH: 500 MG/400?ONE TWICE DAILY
     Route: 048
  8. CITALOPRAM [Suspect]
     Active Substance: CITALOPRAM HYDROBROMIDE
     Indication: Product used for unknown indication
     Dosage: STRENGTH: 20 MG?ONE EVERYDAY
     Route: 048
  9. LOPERAMIDE [Concomitant]
     Active Substance: LOPERAMIDE
     Indication: Product used for unknown indication
     Dosage: STRENGTH: 2 MG?USE AS DIRECTED
     Route: 048
  10. MEBEVERINE [Concomitant]
     Active Substance: MEBEVERINE
     Indication: Product used for unknown indication
     Dosage: STRENGTH: 135 MG?THREE TIMES A DAY
     Route: 048
  11. MIRTAZAPINE [Concomitant]
     Active Substance: MIRTAZAPINE
     Indication: Product used for unknown indication
     Dosage: STRENGTH: 30 MG?ONE EVERYDAY AT NIGHT
     Route: 048
  12. PROPRANOLOL [Concomitant]
     Active Substance: PROPRANOLOL HYDROCHLORIDE
     Indication: Product used for unknown indication
     Dosage: STRENGTH: 40 MG?EVERY DAY
     Route: 048
  13. SERTRALINE [Concomitant]
     Active Substance: SERTRALINE HYDROCHLORIDE
     Indication: Product used for unknown indication
     Dosage: STRENGTH: 100 MG?ONE TO BE TAKEN DAILY
     Route: 048

REACTIONS (6)
  - Drug dispensed to wrong patient [Unknown]
  - Wrong product administered [Unknown]
  - Product dose omission issue [Unknown]
  - Malaise [Unknown]
  - Renal pain [Not Recovered/Not Resolved]
  - Dizziness [Not Recovered/Not Resolved]
